FAERS Safety Report 12458357 (Version 1)
Quarter: 2016Q2

REPORT INFORMATION
  Report Type: Report from Study
  Country: US (occurrence: US)
  Receive Date: 20160613
  Receipt Date: 20160613
  Transmission Date: 20160815
  Serious: No
  Sender: FDA-Public Use
  Company Number: PHEH2016US014233

PATIENT
  Age: 12 Year
  Sex: Male
  Weight: 54.43 kg

DRUGS (4)
  1. IMITREX [Concomitant]
     Active Substance: SUMATRIPTAN SUCCINATE
     Indication: HEADACHE
     Route: 048
  2. KEPPRA [Concomitant]
     Active Substance: LEVETIRACETAM
     Indication: SEIZURE
     Route: 065
  3. AFINITOR [Suspect]
     Active Substance: EVEROLIMUS
     Indication: ASTROCYTOMA, LOW GRADE
     Dosage: 5 MG, QD
     Route: 048
     Dates: start: 20120126
  4. DIASTAT [Concomitant]
     Active Substance: DIAZEPAM
     Indication: SEIZURE
     Dosage: UNK UNK, PRN (AS NEEDED)
     Route: 065

REACTIONS (3)
  - Benign bone neoplasm [Not Recovered/Not Resolved]
  - Renal disorder [Unknown]
  - Weight increased [Unknown]

NARRATIVE: CASE EVENT DATE: 20160406
